FAERS Safety Report 6167293-4 (Version None)
Quarter: 2009Q2

REPORT INFORMATION
  Report Type: 
  Country: None (occurrence: None)
  Receive Date: 20090423
  Receipt Date: 20090413
  Transmission Date: 20091009
  Serious: No
  Sender: FDA-Public Use
  Company Number: 20096585

PATIENT
  Sex: Male

DRUGS (1)
  1. LIORESAL [Suspect]
     Indication: MUSCLE SPASTICITY
     Dosage: 75 MCG, DAILY, INTRATHECAL
     Route: 037

REACTIONS (6)
  - ACCIDENT [None]
  - CATHETER RELATED COMPLICATION [None]
  - DEVICE BREAKAGE [None]
  - FALL [None]
  - GAIT DISTURBANCE [None]
  - HYPERTONIA [None]
